FAERS Safety Report 11693040 (Version 1)
Quarter: 2015Q4

REPORT INFORMATION
  Report Type: Spontaneous
  Country: US (occurrence: None)
  Receive Date: 20151102
  Receipt Date: 20151102
  Transmission Date: 20160304
  Serious: No
  Sender: FDA-Public Use
  Company Number: None

PATIENT
  Age: 46 Year
  Sex: Female
  Weight: 90.72 kg

DRUGS (2)
  1. ZIPRASIDONE. [Suspect]
     Active Substance: ZIPRASIDONE
     Indication: MANIA
     Route: 048
     Dates: start: 20060601, end: 20150112
  2. ZIPRASIDONE. [Suspect]
     Active Substance: ZIPRASIDONE
     Indication: BIPOLAR DISORDER
     Route: 048
     Dates: start: 20060601, end: 20150112

REACTIONS (9)
  - Malaise [None]
  - Paraesthesia [None]
  - Tremor [None]
  - Headache [None]
  - Influenza [None]
  - Anhedonia [None]
  - Drug withdrawal syndrome [None]
  - Feeling of body temperature change [None]
  - Chills [None]

NARRATIVE: CASE EVENT DATE: 20151031
